FAERS Safety Report 19995057 (Version 1)
Quarter: 2021Q4

REPORT INFORMATION
  Report Type: Spontaneous
  Country: US (occurrence: US)
  Receive Date: 20211024
  Receipt Date: 20211024
  Transmission Date: 20220303
  Serious: Yes (Other)
  Sender: FDA-Public Use
  Company Number: None

PATIENT
  Age: 74 Year
  Sex: Male
  Weight: 62.1 kg

DRUGS (11)
  1. EVEROLIMUS [Suspect]
     Active Substance: EVEROLIMUS
     Indication: Meningeal neoplasm
     Route: 048
     Dates: start: 20210525
  2. EVEROLIMUS [Suspect]
     Active Substance: EVEROLIMUS
     Indication: Benign neoplasm
  3. MEGESTROL ACETATE [Concomitant]
     Active Substance: MEGESTROL ACETATE
  4. Iovastatin [Concomitant]
  5. METOPROLOL TARTRATE [Concomitant]
     Active Substance: METOPROLOL TARTRATE
  6. AMLODIPINE BESYLATE [Concomitant]
     Active Substance: AMLODIPINE BESYLATE
  7. butalbitaI-ASA-caffeine [Concomitant]
  8. TAMSULOSIN [Concomitant]
     Active Substance: TAMSULOSIN
  9. MONTELUKAST [Concomitant]
     Active Substance: MONTELUKAST SODIUM
  10. ASPIRIN [Concomitant]
     Active Substance: ASPIRIN
  11. Ioperamide [Concomitant]

REACTIONS (3)
  - Therapy interrupted [None]
  - Loss of consciousness [None]
  - Thrombosis [None]

NARRATIVE: CASE EVENT DATE: 20211021
